FAERS Safety Report 15644810 (Version 1)
Quarter: 2018Q4

REPORT INFORMATION
  Report Type: Spontaneous
  Country: US (occurrence: US)
  Receive Date: 20181121
  Receipt Date: 20181121
  Transmission Date: 20190205
  Serious: Yes (Other)
  Sender: FDA-Public Use
  Company Number: US-BAYER-2018-213779

PATIENT
  Sex: Female

DRUGS (1)
  1. MIRENA [Suspect]
     Active Substance: LEVONORGESTREL
     Indication: CONTRACEPTION
     Dosage: 20 MCG/24HR, CONT
     Route: 015
     Dates: start: 20111122, end: 2016

REACTIONS (13)
  - Anxiety [None]
  - Pain [None]
  - Actinomycosis [None]
  - Ovarian cyst [None]
  - Loss of personal independence in daily activities [None]
  - Perforation [None]
  - Stress [None]
  - Anhedonia [None]
  - Infertility [None]
  - Hydrosalpinx [None]
  - Sepsis [None]
  - Haematochezia [None]
  - Allergy to metals [None]
